FAERS Safety Report 6141274-9 (Version None)
Quarter: 2009Q1

REPORT INFORMATION
  Report Type: 
  Country: None (occurrence: None)
  Receive Date: 20090330
  Receipt Date: 20090330
  Transmission Date: 20090719
  Serious: Yes (Other)
  Sender: FDA-Public Use
  Company Number: None

PATIENT
  Age: 73 Year
  Sex: Female
  Weight: 70.3075 kg

DRUGS (2)
  1. CEPHALEXIN [Suspect]
     Indication: INFECTED CYST
     Dosage: 1 TABLET 3 X DAY PO TOOK ONLY 1 TABLET
     Route: 048
     Dates: start: 20090206, end: 20090216
  2. CEPHALEXIN [Suspect]
     Indication: TOOTH ABSCESS
     Dosage: 1 TABLET 3 X DAY PO TOOK ONLY 1 TABLET
     Route: 048
     Dates: start: 20090313, end: 20090323

REACTIONS (9)
  - COLD SWEAT [None]
  - DIARRHOEA [None]
  - DIZZINESS [None]
  - INTERCEPTED DRUG DISPENSING ERROR [None]
  - NAUSEA [None]
  - PRODUCT QUALITY ISSUE [None]
  - TOOTH ABSCESS [None]
  - VOMITING [None]
  - WEIGHT DECREASED [None]
